FAERS Safety Report 4694064-8 (Version None)
Quarter: 2005Q2

REPORT INFORMATION
  Report Type: 
  Country: None (occurrence: None)
  Receive Date: 20050616
  Receipt Date: 20050603
  Transmission Date: 20051028
  Serious: Yes (Other)
  Sender: FDA-Public Use
  Company Number: 2005085732

PATIENT
  Sex: Female
  Weight: 58.9676 kg

DRUGS (7)
  1. CELEBREX [Suspect]
     Indication: OSTEOARTHRITIS
     Dosage: 200 MG (200 MG, 1 IN 1 D)
     Dates: start: 19980101
  2. ASPIRIN [Concomitant]
  3. CONJUGATED ESTROGENS [Concomitant]
  4. SIMVASTATIN [Concomitant]
  5. ATENOLOL [Concomitant]
  6. HYDROCHLOROTHIZIDE (HYDROCHLOROTHIAZIDE) [Concomitant]
  7. LOSARTAN POTASSIUM [Concomitant]

REACTIONS (2)
  - AORTIC ANEURYSM [None]
  - MYOCARDIAL INFARCTION [None]
